FAERS Safety Report 16548671 (Version 1)
Quarter: 2019Q3

REPORT INFORMATION
  Report Type: Spontaneous
  Country: US (occurrence: US)
  Receive Date: 20190709
  Receipt Date: 20190709
  Transmission Date: 20191004
  Serious: Yes (Other)
  Sender: FDA-Public Use
  Company Number: US-GILEAD-2019-0417321

PATIENT
  Age: 50 Year
  Sex: Female

DRUGS (4)
  1. PEGASYS [Suspect]
     Active Substance: PEGINTERFERON ALFA-2A
     Indication: CHRONIC HEPATITIS C
     Route: 065
     Dates: start: 201402, end: 201404
  2. PROVENTIL [SALBUTAMOL SULFATE] [Concomitant]
     Route: 065
  3. RIBASPHERE [Suspect]
     Active Substance: RIBAVIRIN
     Indication: CHRONIC HEPATITIS C
     Route: 065
     Dates: start: 201402, end: 201404
  4. SOVALDI [Suspect]
     Active Substance: SOFOSBUVIR
     Indication: CHRONIC HEPATITIS C
     Dosage: 400 MG, QD
     Route: 065
     Dates: start: 201402, end: 201404

REACTIONS (6)
  - Headache [Unknown]
  - Depression [Unknown]
  - Dyspnoea [Unknown]
  - Suicidal ideation [Unknown]
  - Alopecia [Unknown]
  - Wheezing [Unknown]
